FAERS Safety Report 23270127 (Version 1)
Quarter: 2023Q4

REPORT INFORMATION
  Report Type: Spontaneous
  Country: CN (occurrence: CN)
  Receive Date: 20231207
  Receipt Date: 20231207
  Transmission Date: 20240110
  Serious: Yes (Life-Threatening, Other)
  Sender: FDA-Public Use
  Company Number: None

PATIENT
  Age: 94 Year
  Sex: Female
  Weight: 30 kg

DRUGS (6)
  1. MANNITOL [Suspect]
     Active Substance: MANNITOL
     Indication: Cerebral infarction
     Dosage: (DOSAGE FORM: INJECTION) 100 ML TWICE DAILY
     Route: 041
     Dates: start: 20231111, end: 20231113
  2. MANNITOL [Suspect]
     Active Substance: MANNITOL
     Indication: Intracranial pressure increased
     Dosage: (DOSAGE FORM: INJECTION) 100 ML 3 TIMES DAILY
     Route: 041
     Dates: start: 20231113, end: 20231116
  3. FUROSEMIDE [Suspect]
     Active Substance: FUROSEMIDE
     Indication: Cerebral infarction
     Dosage: 20 MG TWICE DAILY (Q12H)
     Route: 042
     Dates: start: 20231114, end: 20231116
  4. FUROSEMIDE [Suspect]
     Active Substance: FUROSEMIDE
     Indication: Intracranial pressure increased
  5. FRUCTOSE\GLYCERIN\SODIUM CHLORIDE [Suspect]
     Active Substance: FRUCTOSE\GLYCERIN\SODIUM CHLORIDE
     Indication: Cerebral infarction
     Dosage: 250 ML TWICE DAILY
     Route: 041
     Dates: start: 20231113, end: 20231114
  6. FRUCTOSE\GLYCERIN\SODIUM CHLORIDE [Suspect]
     Active Substance: FRUCTOSE\GLYCERIN\SODIUM CHLORIDE
     Indication: Intracranial pressure increased

REACTIONS (1)
  - Blood potassium decreased [Recovering/Resolving]

NARRATIVE: CASE EVENT DATE: 20231115
